FAERS Safety Report 5336700-9 (Version None)
Quarter: 2007Q2

REPORT INFORMATION
  Report Type: 
  Country: None (occurrence: None)
  Receive Date: 20070524
  Receipt Date: 20070524
  Transmission Date: 20071010
  Serious: No
  Sender: FDA-Public Use
  Company Number: None

PATIENT
  Sex: Male
  Weight: 2.54 kg

DRUGS (1)
  1. FENTANYL [Suspect]
     Indication: CENTRAL VENOUS CATHETERISATION
     Dosage: 4.2 MCG IV 1 DOSE
     Route: 042
     Dates: start: 20070425

REACTIONS (4)
  - ANGER [None]
  - OXYGEN SATURATION DECREASED [None]
  - RESPIRATORY ARREST [None]
  - TENSION [None]
